FAERS Safety Report 7595124-4 (Version None)
Quarter: 2011Q3

REPORT INFORMATION
  Report Type: 
  Country: None (occurrence: None)
  Receive Date: 20110707
  Receipt Date: 20081007
  Transmission Date: 20111222
  Serious: Yes (Death, Other)
  Sender: FDA-Public Use
  Company Number: US-BAYER-200940712NA

PATIENT
  Age: 77 Year
  Sex: Male
  Weight: 84 kg

DRUGS (15)
  1. HEPARIN [Concomitant]
     Dosage: 15000 U, UNK
     Route: 042
     Dates: start: 20020307, end: 20020307
  2. ALBUMIN (HUMAN) [Concomitant]
     Dosage: 100 ML, UNK
     Route: 042
     Dates: start: 20020307, end: 20020307
  3. VANCOMYCIN [Concomitant]
     Dosage: 1 G, UNK
     Route: 042
     Dates: start: 20020307, end: 20020307
  4. EPINEPHRINE [Concomitant]
     Dosage: 0.025 MCG/KG, Q1MIN
     Route: 042
     Dates: start: 20020307, end: 20020307
  5. TRASYLOL [Suspect]
     Indication: PRODUCT USED FOR UNKNOWN INDICATION
     Dosage: 1 ML, UNK, TEST DOSE
     Route: 042
     Dates: start: 20020307, end: 20020307
  6. MANNITOL [Concomitant]
     Dosage: 125 G, UNK
     Route: 042
     Dates: start: 20020307, end: 20020307
  7. TRASYLOL [Suspect]
     Dosage: 25 ML, Q1HR
     Route: 042
     Dates: start: 20020307, end: 20020307
  8. LASIX [Concomitant]
     Dosage: 80 MG, BID
     Route: 048
     Dates: start: 20020221
  9. VERSED [Concomitant]
     Dosage: 2 MG, UNK
     Route: 042
     Dates: start: 20020307, end: 20020307
  10. FORANE [Concomitant]
     Dosage: 0.5%, UNK, INHALATION
     Dates: start: 20020307, end: 20020307
  11. DOPAMINE HCL [Concomitant]
     Dosage: 5-10 MCG/KG, Q1MIN
     Route: 042
     Dates: start: 20020307, end: 20020307
  12. TRASYLOL [Suspect]
     Indication: AORTIC VALVE REPLACEMENT
     Dosage: 100 ML, UNK, LOADING DOSE
     Route: 042
     Dates: start: 20020307, end: 20020307
  13. COUMADIN [Concomitant]
     Route: 048
  14. HEPARIN [Concomitant]
     Dosage: 12000 U, UNK
     Route: 042
     Dates: start: 20020307, end: 20020307
  15. SODIUM BICARBONATE [Concomitant]
     Dosage: 50 MEQ, UNK
     Route: 042
     Dates: start: 20020307, end: 20020307

REACTIONS (13)
  - RENAL FAILURE [None]
  - EMOTIONAL DISTRESS [None]
  - INJURY [None]
  - STRESS [None]
  - MULTI-ORGAN FAILURE [None]
  - DEATH [None]
  - RENAL IMPAIRMENT [None]
  - ANXIETY [None]
  - PAIN [None]
  - FEAR [None]
  - ANHEDONIA [None]
  - RENAL INJURY [None]
  - UNEVALUABLE EVENT [None]
